FAERS Safety Report 5450613-3 (Version None)
Quarter: 2007Q3

REPORT INFORMATION
  Report Type: 
  Country: None (occurrence: None)
  Receive Date: 20070912
  Receipt Date: 20070906
  Transmission Date: 20080115
  Serious: Yes (Hospitalization)
  Sender: FDA-Public Use
  Company Number: US-MERCK-0709USA00911

PATIENT
  Age: 37 Year
  Sex: Female

DRUGS (2)
  1. CANCIDAS [Suspect]
     Indication: CANDIDIASIS
     Route: 042
  2. FLUCONAZOLE [Concomitant]
     Indication: CANDIDIASIS
     Route: 042

REACTIONS (1)
  - DRUG INEFFECTIVE [None]
